FAERS Safety Report 13443450 (Version 1)
Quarter: 2017Q2

REPORT INFORMATION
  Report Type: Spontaneous
  Country: US (occurrence: US)
  Receive Date: 20170413
  Receipt Date: 20170413
  Transmission Date: 20170830
  Serious: No
  Sender: FDA-Public Use
  Company Number: None

PATIENT
  Age: 79 Year
  Sex: Male

DRUGS (1)
  1. NINLARO [Suspect]
     Active Substance: IXAZOMIB
     Indication: PLASMA CELL MYELOMA
     Dosage: 3 MG ON DAY 1, 8 AND 15 EVERY 28 DAYS ORALLY
     Route: 048
     Dates: start: 20170211, end: 20170307

REACTIONS (1)
  - Full blood count increased [None]

NARRATIVE: CASE EVENT DATE: 20170410
